FAERS Safety Report 22147521 (Version 1)
Quarter: 2023Q1

REPORT INFORMATION
  Report Type: Report from Study
  Country: ES (occurrence: ES)
  Receive Date: 20230328
  Receipt Date: 20230328
  Transmission Date: 20230418
  Serious: Yes (Other)
  Sender: FDA-Public Use
  Company Number: None

PATIENT
  Age: 57 Year
  Sex: Male

DRUGS (1)
  1. INFLIXIMAB [Suspect]
     Active Substance: INFLIXIMAB
     Indication: Ankylosing spondylitis
     Dosage: 171.00MG / 12 WEEKS
     Route: 042
     Dates: start: 20080215, end: 20200701

REACTIONS (1)
  - Endocarditis staphylococcal [Recovering/Resolving]

NARRATIVE: CASE EVENT DATE: 20200925
